FAERS Safety Report 17988392 (Version 1)
Quarter: 2020Q3

REPORT INFORMATION
  Report Type: Spontaneous
  Country: US (occurrence: US)
  Receive Date: 20200707
  Receipt Date: 20200707
  Transmission Date: 20201103
  Serious: Yes (Other)
  Sender: FDA-Public Use
  Company Number: US-BAYER-2020-129471

PATIENT
  Age: 30 Year
  Sex: Female

DRUGS (1)
  1. MIRENA [Suspect]
     Active Substance: LEVONORGESTREL
     Indication: CONTRACEPTION
     Dosage: 20 ?G PER DAY CONTINUOUSLY
     Route: 015
     Dates: start: 201507, end: 20200518

REACTIONS (8)
  - Uterine infection [Recovered/Resolved]
  - Pelvic pain [Not Recovered/Not Resolved]
  - Embedded device [Recovered/Resolved with Sequelae]
  - Vaginal discharge [Recovered/Resolved]
  - Complication of device removal [None]
  - Medical device pain [Recovered/Resolved]
  - Loss of consciousness [None]
  - Procedural vomiting [None]

NARRATIVE: CASE EVENT DATE: 202003
